FAERS Safety Report 11934508 (Version 1)
Quarter: 2016Q1

REPORT INFORMATION
  Report Type: Spontaneous
  Country: JP (occurrence: JP)
  Receive Date: 20160121
  Receipt Date: 20160121
  Transmission Date: 20160526
  Serious: Yes (Death, Hospitalization)
  Sender: FDA-Public Use
  Company Number: PHBS1996JP05619

PATIENT
  Age: 67 Year
  Sex: Male

DRUGS (4)
  1. LIORESAL [Suspect]
     Active Substance: BACLOFEN
     Route: 065
     Dates: start: 19960420, end: 19960820
  2. DRAGANON [Concomitant]
     Route: 065
     Dates: start: 19960420, end: 19960820
  3. LASIX [Concomitant]
     Active Substance: FUROSEMIDE
     Route: 065
  4. SYMMETREL [Suspect]
     Active Substance: AMANTADINE HYDROCHLORIDE
     Route: 048
     Dates: start: 19960420, end: 19960820

REACTIONS (1)
  - Glomerulonephritis [Fatal]

NARRATIVE: CASE EVENT DATE: 19960619
